FAERS Safety Report 4676523-7 (Version None)
Quarter: 2005Q2

REPORT INFORMATION
  Report Type: 
  Country: None (occurrence: None)
  Receive Date: 20050525
  Receipt Date: 20050516
  Transmission Date: 20051028
  Serious: Yes (Hospitalization)
  Sender: FDA-Public Use
  Company Number: 2005075177

PATIENT
  Age: 61 Year
  Sex: Female

DRUGS (7)
  1. METHYLPREDNISOLONE [Suspect]
     Indication: ILL-DEFINED DISORDER
     Dates: start: 20041012, end: 20041015
  2. CEFTRIAXONE [Suspect]
     Indication: ILL-DEFINED DISORDER
     Dates: start: 20041012, end: 20041015
  3. AMBROXOL [Concomitant]
  4. PARACETAMOL [Concomitant]
  5. LEVOTHYROXINE SODIUM [Concomitant]
  6. PAROXETINE HCL [Concomitant]
  7. PROPRANOLOL [Concomitant]

REACTIONS (4)
  - EYE OEDEMA [None]
  - FOOD ALLERGY [None]
  - OCULAR HYPERAEMIA [None]
  - SWOLLEN TONGUE [None]
